FAERS Safety Report 8023058-X (Version None)
Quarter: 2012Q1

REPORT INFORMATION
  Report Type: 
  Country: None (occurrence: None)
  Receive Date: 20120104
  Receipt Date: 20111226
  Transmission Date: 20120608
  Serious: Yes (Other)
  Sender: FDA-Public Use
  Company Number: JP-PFIZER INC-2011313133

PATIENT
  Age: 63 Year
  Sex: Female

DRUGS (1)
  1. AMPICILLIN SODIUM AND SULBACTAM SODIUM [Suspect]
     Indication: CYSTITIS
     Dosage: UNK
     Dates: start: 20110301

REACTIONS (1)
  - ENTEROCOLITIS HAEMORRHAGIC [None]
